FAERS Safety Report 8815317 (Version 3)
Quarter: 2012Q4

REPORT INFORMATION
  Report Type: 
  Country: US (occurrence: US)
  Receive Date: 20120928
  Receipt Date: 20121206
  Transmission Date: 20130627
  Serious: Yes (Hospitalization)
  Sender: FDA-Public Use
  Company Number: US-JNJFOC-20120909493

PATIENT
  Age: 66 Year
  Sex: Female
  Weight: 77.11 kg

DRUGS (5)
  1. BENGAY VANISHING SCENT [Suspect]
     Indication: PAIN IN EXTREMITY
     Dosage: a little amount
     Route: 061
  2. DIOVAN [Concomitant]
     Indication: BLOOD PRESSURE
     Route: 065
  3. LIPITOR [Concomitant]
     Indication: BLOOD CHOLESTEROL
     Route: 065
  4. IRON [Concomitant]
     Indication: ANAEMIA
     Route: 065
  5. PRORENAL [Concomitant]
     Indication: NEPHROPATHY
     Dosage: 2 caps amount
     Route: 065

REACTIONS (2)
  - Application site burn [Not Recovered/Not Resolved]
  - Blister [Not Recovered/Not Resolved]
